FAERS Safety Report 10594894 (Version 2)
Quarter: 2014Q4

REPORT INFORMATION
  Report Type: Spontaneous
  Country: US (occurrence: None)
  Receive Date: 20141113
  Receipt Date: 20141203
  Transmission Date: 20150529
  Serious: Yes (Hospitalization, Other)
  Sender: FDA-Public Use
  Company Number: 2250051-2014-00114

PATIENT
  Age: 25 Year
  Sex: Female

DRUGS (1)
  1. RHOGAM ULTRA-FILTERED PLUS [Suspect]
     Active Substance: HUMAN RHO(D) IMMUNE GLOBULIN
     Indication: POSTPARTUM STATE
     Route: 030
     Dates: start: 20110921

REACTIONS (1)
  - Atypical pneumonia [None]

NARRATIVE: CASE EVENT DATE: 20110921
